FAERS Safety Report 5013259-7 (Version None)
Quarter: 2006Q2

REPORT INFORMATION
  Report Type: 
  Country: None (occurrence: None)
  Receive Date: 20060530
  Receipt Date: 20060331
  Transmission Date: 20061013
  Serious: No
  Sender: FDA-Public Use
  Company Number: US-GLAXOSMITHKLINE-A0599947A

PATIENT
  Age: 38 Year
  Sex: Female

DRUGS (4)
  1. WELLBUTRIN XL [Suspect]
     Dosage: 150MG IN THE MORNING
     Route: 048
     Dates: start: 20060328, end: 20060330
  2. SYNTHROID [Concomitant]
  3. FLONASE [Concomitant]
  4. NICODERM [Concomitant]

REACTIONS (3)
  - FEELING ABNORMAL [None]
  - FEELING JITTERY [None]
  - INSOMNIA [None]
